FAERS Safety Report 5246539-0 (Version None)
Quarter: 2007Q1

REPORT INFORMATION
  Report Type: 
  Country: None (occurrence: None)
  Receive Date: 20070226
  Receipt Date: 20070215
  Transmission Date: 20070707
  Serious: Yes (Hospitalization, Disabling)
  Sender: FDA-Public Use
  Company Number: GBWYE658827NOV06

PATIENT
  Weight: 99.9 kg

DRUGS (11)
  1. ENBREL [Suspect]
     Indication: RHEUMATOID ARTHRITIS
     Route: 058
     Dates: start: 20050108, end: 20060701
  2. FOLIC ACID [Concomitant]
     Indication: RHEUMATOID ARTHRITIS
     Route: 048
     Dates: start: 19940101
  3. METFORMIN [Concomitant]
     Indication: DIABETES MELLITUS
  4. DIPYRIDAMOLE [Concomitant]
  5. ACETAMINOPHEN W/ CODEINE [Concomitant]
     Indication: PAIN
     Dosage: DOSAGE UNKNOWN, PRN
  6. ALPHAGAN [Concomitant]
     Dosage: 0.2%, 1 DROP TO LEFT EYE
  7. CITALOPRAM [Concomitant]
  8. MIXTARD HUMAN 70/30 [Concomitant]
     Indication: DIABETES MELLITUS
     Dosage: 40 UNIT EVERY 1 DAY
     Route: 058
  9. ATORVASTATIN [Concomitant]
     Dosage: 40MG, FREQUENCY UNKNOWN
  10. METHOTREXATE [Concomitant]
     Indication: RHEUMATOID ARTHRITIS
     Route: 048
     Dates: start: 19940101
  11. LANSOPRAZOLE [Concomitant]

REACTIONS (3)
  - CONDITION AGGRAVATED [None]
  - GLAUCOMA [None]
  - PAPILLOEDEMA [None]
